FAERS Safety Report 16019699 (Version 2)
Quarter: 2019Q2

REPORT INFORMATION
  Report Type: Spontaneous
  Country: RU (occurrence: RU)
  Receive Date: 20190228
  Receipt Date: 20190410
  Transmission Date: 20190711
  Serious: Yes (Death, Other)
  Sender: FDA-Public Use
  Company Number: PHHY2019RU043186

PATIENT
  Age: 56 Year
  Sex: Male

DRUGS (6)
  1. PACLITAXEL. [Suspect]
     Active Substance: PACLITAXEL
     Indication: OESOPHAGEAL ADENOCARCINOMA STAGE IV
     Dosage: 80 MG/M2, UNK (ON DAYS 1, 8, 15)
     Route: 065
     Dates: start: 201611
  2. CAPECITABINE. [Suspect]
     Active Substance: CAPECITABINE
     Indication: OESOPHAGEAL ADENOCARCINOMA STAGE IV
     Dosage: 2000 MG/M2, QD (21 DAY CYCLE)
     Route: 065
  3. RAMUCIRUMAB [Suspect]
     Active Substance: RAMUCIRUMAB
     Indication: OESOPHAGEAL ADENOCARCINOMA STAGE IV
     Dosage: 8 MG/KG, UNK (ON DAYS 1, 15, WITHIN A 28-DAY CYCLE)
     Route: 065
     Dates: start: 201611
  4. RAMUCIRUMAB [Suspect]
     Active Substance: RAMUCIRUMAB
     Dosage: 8 MG/KG, UNK (ON DAYS 1, 15, WITHIN A 28-DAY CYCLE)
     Route: 065
     Dates: start: 20170119, end: 20170202
  5. PACLITAXEL. [Suspect]
     Active Substance: PACLITAXEL
     Dosage: 80 MG/M2, UNK (ON DAYS 1, 8, 15)
     Route: 065
     Dates: start: 20170119, end: 20170202
  6. OXALIPLATIN. [Suspect]
     Active Substance: OXALIPLATIN
     Indication: OESOPHAGEAL ADENOCARCINOMA STAGE IV
     Dosage: 100 MG/M2, UNK (ON DAY 1)
     Route: 041

REACTIONS (14)
  - Lymphadenopathy [Unknown]
  - Malignant neoplasm progression [Unknown]
  - Neutropenia [Unknown]
  - Haemorrhage [Unknown]
  - Loss of consciousness [Fatal]
  - Diarrhoea [Unknown]
  - Haematemesis [Unknown]
  - General physical health deterioration [Fatal]
  - Lymphangitis [Unknown]
  - Pleurisy [Unknown]
  - Product use in unapproved indication [Unknown]
  - Syncope [Fatal]
  - Oesophageal adenocarcinoma stage IV [Unknown]
  - Anaemia [Unknown]

NARRATIVE: CASE EVENT DATE: 2016
